FAERS Safety Report 8602438-5 (Version None)
Quarter: 2012Q3

REPORT INFORMATION
  Report Type: 
  Country: None (occurrence: None)
  Receive Date: 20120817
  Receipt Date: 20120808
  Transmission Date: 20120928
  Serious: Yes (Hospitalization)
  Sender: FDA-Public Use
  Company Number: KR-UCBSA-057859

PATIENT
  Age: 53 Year
  Sex: Female
  Weight: 46 kg

DRUGS (23)
  1. MELOXICAM [Concomitant]
     Indication: RHEUMATOID ARTHRITIS
     Route: 048
     Dates: start: 20090629
  2. ZOLPIDEM [Concomitant]
     Indication: HERPES ZOSTER
     Route: 048
     Dates: start: 20091215
  3. ZOLPIDEM [Concomitant]
     Route: 048
     Dates: start: 20120531, end: 20120604
  4. PARAMACET [Concomitant]
     Dosage: DOSE PER INTAKE: 1 TABLET, TWICE PER DAY
     Route: 048
     Dates: start: 20120522, end: 20120523
  5. PARAMACET [Concomitant]
     Dosage: DOSE PER INTAKE: 1 TABLET, TWICE PER DAY
     Route: 048
     Dates: start: 20120605
  6. PARAMACET [Concomitant]
     Indication: HERPES ZOSTER
     Dosage: DOSE PER INTAKE: 1 TABLET, TWICE PER DAY
     Route: 048
     Dates: start: 20100223
  7. ZOLPIDEM [Concomitant]
     Route: 048
     Dates: start: 20120531, end: 20120604
  8. PREDNISOLONE [Concomitant]
     Indication: RHEUMATOID ARTHRITIS
     Route: 048
     Dates: start: 20090921
  9. ZOLPIDEM [Concomitant]
     Route: 048
     Dates: start: 20120521, end: 20120530
  10. PARAMACET [Concomitant]
     Indication: PAIN
     Dosage: DOSE PER INTAKE: 1 TABLET, TWICE PER DAY
     Route: 048
     Dates: start: 20100223
  11. PARAMACET [Concomitant]
     Dosage: DOSE PER INTAKE: 1 TABLET, TWICE PER DAY
     Route: 048
     Dates: start: 20120605
  12. PREDNISOLONE [Concomitant]
     Route: 048
     Dates: start: 20120526, end: 20120605
  13. ZOLPIDEM [Concomitant]
     Indication: INSOMNIA
     Route: 048
     Dates: start: 20091215
  14. ZOLPIDEM [Concomitant]
     Route: 048
     Dates: start: 20120521, end: 20120530
  15. PREDNISOLONE [Concomitant]
     Route: 048
     Dates: start: 20120606
  16. METHOTREXATE [Concomitant]
     Indication: RHEUMATOID ARTHRITIS
     Route: 048
     Dates: start: 20070917, end: 20120520
  17. PARAMACET [Concomitant]
     Dosage: DOSE PER INTAKE: 1 TABLET, TWICE PER DAY
     Route: 048
     Dates: start: 20120522, end: 20120523
  18. PARAMACET [Concomitant]
     Dosage: DOSE PER INTAKE: 1 TABLET, TWICE PER DAY
     Route: 048
     Dates: start: 20120605
  19. CERTOLIZUMAB PEGOL [Suspect]
     Indication: RHEUMATOID ARTHRITIS
     Route: 058
     Dates: start: 20100601, end: 20120502
  20. REBAMIPIDE [Concomitant]
     Indication: PROPHYLAXIS
     Route: 048
     Dates: start: 20070314
  21. FOLIC ACID [Concomitant]
     Indication: PROPHYLAXIS
     Route: 048
     Dates: start: 20070314
  22. PARAMACET [Concomitant]
     Indication: RHEUMATOID ARTHRITIS
     Dosage: DOSE PER INTAKE: 1 TABLET, TWICE PER DAY
     Route: 048
     Dates: start: 20100223
  23. PARAMACET [Concomitant]
     Dosage: DOSE PER INTAKE: 1 TABLET, TWICE PER DAY
     Route: 048
     Dates: start: 20120522, end: 20120523

REACTIONS (1)
  - HERPES ZOSTER [None]
